FAERS Safety Report 22517649 (Version 1)
Quarter: 2023Q2

REPORT INFORMATION
  Report Type: Spontaneous
  Country: DE (occurrence: DE)
  Receive Date: 20230604
  Receipt Date: 20230604
  Transmission Date: 20230722
  Serious: Yes (Hospitalization, Other)
  Sender: FDA-Public Use
  Company Number: DE-CADRBFARM-2023319411

PATIENT
  Age: 78 Year
  Sex: Female

DRUGS (4)
  1. LINEZOLID [Suspect]
     Active Substance: LINEZOLID
     Indication: Impaired healing
     Dosage: 600 MILLIGRAM (1-0-1)
     Route: 048
     Dates: start: 20230503
  2. EDOXABAN TOSYLATE [Concomitant]
     Active Substance: EDOXABAN TOSYLATE
     Indication: Product used for unknown indication
     Dosage: UNK
     Route: 065
  3. METHOTREXATE SODIUM [Concomitant]
     Active Substance: METHOTREXATE SODIUM
     Indication: Rheumatoid arthritis
     Dosage: 7.5 MILLIGRAM, EVERY WEEK (7,5 MG 1 X W?CHENTLICH)
     Route: 065
  4. ATORVASTATIN [Concomitant]
     Active Substance: ATORVASTATIN
     Indication: Product used for unknown indication
     Dosage: 10 MILLIGRAM, ONCE A DAY (0-0-1)
     Route: 065

REACTIONS (9)
  - Thrombocytopenia [Recovering/Resolving]
  - Asthenia [Recovering/Resolving]
  - Blood creatine phosphokinase increased [Recovering/Resolving]
  - Decreased appetite [Recovering/Resolving]
  - Dizziness [Unknown]
  - Hepatic enzyme increased [Recovering/Resolving]
  - Muscular weakness [Recovering/Resolving]
  - Nausea [Unknown]
  - Stomatitis [Recovering/Resolving]

NARRATIVE: CASE EVENT DATE: 20230501
